FAERS Safety Report 8542809-9 (Version None)
Quarter: 2012Q3

REPORT INFORMATION
  Report Type: 
  Country: None (occurrence: None)
  Receive Date: 20120727
  Receipt Date: 20120719
  Transmission Date: 20120928
  Serious: No
  Sender: FDA-Public Use
  Company Number: US-BIOGENIDEC-2011BI028671

PATIENT
  Age: 35 Year
  Sex: Female

DRUGS (2)
  1. FLEXERIL [Concomitant]
     Indication: MUSCLE SPASMS
  2. AVONEX [Suspect]
     Indication: MULTIPLE SCLEROSIS
     Route: 030
     Dates: start: 20110606

REACTIONS (5)
  - GAIT DISTURBANCE [None]
  - PAIN [None]
  - ARTHRALGIA [None]
  - INFLUENZA LIKE ILLNESS [None]
  - INSOMNIA [None]
